FAERS Safety Report 5708146-2 (Version None)
Quarter: 2008Q2

REPORT INFORMATION
  Report Type: 
  Country: None (occurrence: None)
  Receive Date: 20080414
  Receipt Date: 20061120
  Transmission Date: 20081010
  Serious: Yes (Other)
  Sender: FDA-Public Use
  Company Number: 2006VX002308

PATIENT
  Age: 53 Year
  Sex: Male
  Weight: 75 kg

DRUGS (3)
  1. LIBRIUM [Suspect]
     Dosage: 1250 MG
  2. PROVAS (NO PREF. NAME) [Suspect]
  3. VALIUM [Suspect]
     Dosage: 500 MG; PO
     Route: 048

REACTIONS (5)
  - HYPOTENSION [None]
  - OVERDOSE [None]
  - SOMNOLENCE [None]
  - SUICIDE ATTEMPT [None]
  - VOMITING [None]
